FAERS Safety Report 15594846 (Version 1)
Quarter: 2018Q4

REPORT INFORMATION
  Report Type: Spontaneous
  Country: US (occurrence: US)
  Receive Date: 20181106
  Receipt Date: 20181106
  Transmission Date: 20190205
  Serious: No
  Sender: FDA-Public Use
  Company Number: US-SA-2018SA303680

PATIENT
  Sex: Female

DRUGS (2)
  1. ASPERCREME WITH LIDOCAINE [Suspect]
     Active Substance: LIDOCAINE
     Indication: BACK PAIN
  2. ASPERCREME [LIDOCAINE] [Concomitant]

REACTIONS (2)
  - Product quality issue [Unknown]
  - Drug ineffective [Unknown]
